FAERS Safety Report 17033222 (Version 2)
Quarter: 2020Q1

REPORT INFORMATION
  Report Type: Spontaneous
  Country: US (occurrence: US)
  Receive Date: 20191114
  Receipt Date: 20200203
  Transmission Date: 20200409
  Serious: No
  Sender: FDA-Public Use
  Company Number: US-SA-2019SA310649

PATIENT
  Age: 13 Year
  Sex: Male

DRUGS (3)
  1. HYDROCORT [HYDROCORTISONE ACETATE] [Concomitant]
  2. DUPIXENT [Suspect]
     Active Substance: DUPILUMAB
     Indication: DERMATITIS ATOPIC
     Dosage: 200 MG, QOW
     Route: 058
     Dates: start: 20190816
  3. TRIAMCINOLON [TRIAMCINOLONE] [Concomitant]

REACTIONS (3)
  - Product dose omission [Unknown]
  - Condition aggravated [Unknown]
  - Rash [Not Recovered/Not Resolved]

NARRATIVE: CASE EVENT DATE: 20191025
